FAERS Safety Report 5070584-1 (Version None)
Quarter: 2006Q3

REPORT INFORMATION
  Report Type: 
  Country: None (occurrence: None)
  Receive Date: 20060804
  Receipt Date: 20050629
  Transmission Date: 20061208
  Serious: No
  Sender: FDA-Public Use
  Company Number: US-GLAXOSMITHKLINE-A0564603A

PATIENT
  Age: 50 Year
  Sex: Female

DRUGS (2)
  1. NICORETTE [Suspect]
     Dates: start: 20050311, end: 20050319
  2. NICORETTE [Suspect]

REACTIONS (3)
  - GINGIVAL BLISTER [None]
  - GINGIVAL DISORDER [None]
  - GINGIVAL PAIN [None]
